FAERS Safety Report 20418507 (Version 4)
Quarter: 2022Q1

REPORT INFORMATION
  Report Type: Report from Study
  Country: KR (occurrence: KR)
  Receive Date: 20220202
  Receipt Date: 20220221
  Transmission Date: 20220424
  Serious: Yes (Hospitalization)
  Sender: FDA-Public Use
  Company Number: KR-PFIZER INC-202200161085

PATIENT
  Age: 74 Year
  Sex: Female
  Weight: 72.9 kg

DRUGS (7)
  1. DACOMITINIB [Suspect]
     Active Substance: DACOMITINIB
     Indication: Non-small cell lung cancer
     Dosage: 45 MG, 1X/DAY, VIZIMPRO
     Route: 048
     Dates: start: 20211025, end: 20211030
  2. DACOMITINIB [Suspect]
     Active Substance: DACOMITINIB
     Dosage: 45 MG, 1X/DAY, VIZIMPRO
     Route: 048
     Dates: start: 20211101, end: 20220120
  3. DACOMITINIB [Suspect]
     Active Substance: DACOMITINIB
     Dosage: 30 MG, 1X/DAY, VIZIMPRO
     Route: 048
     Dates: start: 20220121, end: 20220127
  4. HERBEN SR [Concomitant]
     Indication: Cardiac disorder
     Dosage: UNK
     Route: 048
     Dates: start: 20211025
  5. HERBEN SR [Concomitant]
     Indication: Hypertension
  6. VIVACOR [CARVEDILOL] [Concomitant]
     Indication: Cardiac disorder
     Dosage: UNK
     Route: 048
     Dates: start: 20211025
  7. ASPIRIN [Concomitant]
     Active Substance: ASPIRIN
     Indication: Cardiac disorder
     Dosage: UNK
     Route: 048
     Dates: start: 20211025

REACTIONS (1)
  - Urticaria [Recovered/Resolved]

NARRATIVE: CASE EVENT DATE: 20220120
